FAERS Safety Report 6583264-8 (Version None)
Quarter: 2010Q1

REPORT INFORMATION
  Report Type: 
  Country: None (occurrence: None)
  Receive Date: 20100216
  Receipt Date: 20100211
  Transmission Date: 20100710
  Serious: Yes (Disabling)
  Sender: FDA-Public Use
  Company Number: A0839215A

PATIENT
  Age: 54 Year
  Sex: Male

DRUGS (5)
  1. REQUIP [Suspect]
     Indication: PARKINSON'S DISEASE
     Dosage: 2MG FOUR TIMES PER DAY
     Route: 048
     Dates: start: 20080201, end: 20090508
  2. AMANTADINE HCL [Suspect]
     Indication: DRUG USE FOR UNKNOWN INDICATION
     Route: 065
  3. COLACE [Concomitant]
  4. MULTI-VITAMIN [Concomitant]
  5. FISH OIL [Concomitant]

REACTIONS (2)
  - CORNEAL OEDEMA [None]
  - HALLUCINATION [None]
